FAERS Safety Report 14619641 (Version 13)
Quarter: 2020Q1

REPORT INFORMATION
  Report Type: Spontaneous
  Country: GB (occurrence: GB)
  Receive Date: 20180309
  Receipt Date: 20200304
  Transmission Date: 20200409
  Serious: Yes (Hospitalization, Other)
  Sender: FDA-Public Use
  Company Number: GB-AUROBINDO-AUR-APL-2018-012416

PATIENT
  Age: 35 Year
  Sex: Female
  Weight: 54 kg

DRUGS (55)
  1. ARIPIPRAZOLE TABLETS [Suspect]
     Active Substance: ARIPIPRAZOLE
     Dosage: 15 MILLIGRAM
     Route: 048
     Dates: start: 20100730
  2. DIHYDROCODEINE TARTRATE [Suspect]
     Active Substance: DIHYDROCODEINE BITARTRATE
     Dosage: 30 MILLIGRAM, 3 TIMES A DAY
     Route: 065
     Dates: start: 20090923
  3. LIDOCAINE. [Concomitant]
     Active Substance: LIDOCAINE
     Dosage: 5 PERCENT
     Route: 065
     Dates: start: 20100604
  4. MICONAZOLE. [Concomitant]
     Active Substance: MICONAZOLE
     Dosage: 24 DOSAGE FORM, ONCE A DAY (24 MG/ML, QD )
     Route: 065
     Dates: start: 20100618
  5. LACTULOSE. [Concomitant]
     Active Substance: LACTULOSE
     Indication: PRODUCT USED FOR UNKNOWN INDICATION
     Dosage: UNK, ONCE A DAY
     Route: 065
  6. LACTULOSE. [Concomitant]
     Active Substance: LACTULOSE
     Dosage: 1 DOSAGE FORM, ONCE A DAY (1DF=3.35G/5ML 5 TO 10ML/D )
     Route: 065
     Dates: start: 20090722
  7. SERTRALINE [Suspect]
     Active Substance: SERTRALINE HYDROCHLORIDE
     Indication: PRODUCT USED FOR UNKNOWN INDICATION
     Dosage: 100 MICROGRAM, ONCE A DAY
     Route: 048
     Dates: start: 20100730
  8. LAMICTAL [Suspect]
     Active Substance: LAMOTRIGINE
     Indication: EPILEPSY
     Dosage: 400 MILLIGRAM, TWO TIMES A DAY
     Route: 048
     Dates: start: 2004
  9. FOLIC ACID. [Concomitant]
     Active Substance: FOLIC ACID
     Indication: PRODUCT USED FOR UNKNOWN INDICATION
     Dosage: 5 MILLIGRAM
     Route: 048
     Dates: start: 20091130
  10. AMOXICILLIN TRIHYDRATE [Concomitant]
     Active Substance: AMOXICILLIN
     Dosage: 500 MILLIGRAM, 3 TIMES A DAY
     Route: 048
     Dates: start: 20091023
  11. PROCHLORPERAZINE. [Concomitant]
     Active Substance: PROCHLORPERAZINE
     Dosage: 5 MILLIGRAM, PRN
     Route: 048
     Dates: start: 20091221
  12. CHLORAMPHENICOL [Concomitant]
     Active Substance: CHLORAMPHENICOL
     Dosage: UNK, ONCE A DAY
     Route: 065
     Dates: start: 20090722
  13. CLOBAZAM. [Concomitant]
     Active Substance: CLOBAZAM
     Indication: PRODUCT USED FOR UNKNOWN INDICATION
     Dosage: UNK
     Route: 065
  14. CLOBAZAM. [Concomitant]
     Active Substance: CLOBAZAM
     Dosage: UNK, TWO TIMES A DAY
     Route: 065
     Dates: start: 20100702, end: 20100708
  15. PROCHLORPERAZINE. [Concomitant]
     Active Substance: PROCHLORPERAZINE
     Indication: NAUSEA
     Dosage: 5 MILLIGRAM PRN
     Route: 048
  16. CO-AMOXICLAV [Concomitant]
     Active Substance: AMOXICILLIN\CLAVULANATE POTASSIUM
     Indication: PRODUCT USED FOR UNKNOWN INDICATION
     Dosage: UNK
     Route: 065
     Dates: start: 20100517
  17. DICLOFENAC SODIUM. [Concomitant]
     Active Substance: DICLOFENAC SODIUM
     Indication: PRODUCT USED FOR UNKNOWN INDICATION
     Dosage: 50 MILLIGRAM, 3 TIMES A DAY
     Route: 065
     Dates: start: 20090501
  18. LAMICTAL [Suspect]
     Active Substance: LAMOTRIGINE
     Dosage: 800 MILLIGRAM, ONCE A DAY
     Route: 048
     Dates: start: 20100730
  19. LAMICTAL [Suspect]
     Active Substance: LAMOTRIGINE
     Dosage: 200 MILLIGRAM, TWO TIMES A DAY
     Route: 065
     Dates: start: 20100730
  20. LAMICTAL [Suspect]
     Active Substance: LAMOTRIGINE
     Dosage: 25 MILLIGRAM, TWO TIMES A DAY
     Route: 065
     Dates: start: 20100730
  21. PROPRANOLOL HYDROCHLORIDE. [Suspect]
     Active Substance: PROPRANOLOL HYDROCHLORIDE
     Indication: PRODUCT USED FOR UNKNOWN INDICATION
     Dosage: 10 MILLIGRAM
     Route: 048
     Dates: start: 20100730
  22. FOLIC ACID. [Concomitant]
     Active Substance: FOLIC ACID
     Dosage: 5 MILLIGRAM
     Route: 048
     Dates: start: 20091221
  23. LIDOCAINE. [Concomitant]
     Active Substance: LIDOCAINE
     Dosage: 5 PERCENT
     Route: 065
     Dates: start: 20100611
  24. SERTRALINE [Suspect]
     Active Substance: SERTRALINE HYDROCHLORIDE
     Dosage: 100 MILLIGRAM, TWO TIMES A DAY
     Route: 048
  25. LAMICTAL [Suspect]
     Active Substance: LAMOTRIGINE
     Dosage: 100 MILLIGRAM, TWO TIMES A DAY
     Route: 048
     Dates: start: 20100730
  26. LIDOCAINE. [Concomitant]
     Active Substance: LIDOCAINE
     Indication: PRODUCT USED FOR UNKNOWN INDICATION
     Dosage: UNK
     Route: 065
  27. DICLOFENAC SODIUM. [Concomitant]
     Active Substance: DICLOFENAC SODIUM
     Indication: PRODUCT USED FOR UNKNOWN INDICATION
     Dosage: 50 MILLIGRAM, 3 TIMES A DAY (150 MG, DAILY)
     Route: 065
     Dates: start: 20090501
  28. NORETHISTERONE [Suspect]
     Active Substance: NORETHINDRONE
     Indication: BACK PAIN
     Dosage: 350 MILLIGRAM
     Route: 048
     Dates: start: 20091023
  29. AMOXICILLIN TRIHYDRATE [Concomitant]
     Active Substance: AMOXICILLIN
     Indication: PRODUCT USED FOR UNKNOWN INDICATION
     Dosage: 1 DOSAGE FORM, 3 TIMES A DAY
     Route: 048
     Dates: start: 20100328
  30. CHLORAMPHENICOL [Concomitant]
     Active Substance: CHLORAMPHENICOL
     Dosage: 0.5 PERCENT, TWO TIMES A DAY
     Route: 065
     Dates: start: 20090722
  31. MICONAZOLE. [Concomitant]
     Active Substance: MICONAZOLE
     Dosage: UNK, ONCE A DAY
     Route: 065
     Dates: start: 20100604
  32. CLOBAZAM. [Concomitant]
     Active Substance: CLOBAZAM
     Dosage: UNK
     Route: 065
     Dates: start: 20100709
  33. DIHYDROCODEINE BITARTRATE;PARACETAMOL [Suspect]
     Active Substance: ACETAMINOPHEN\DIHYDROCODEINE BITARTRATE
     Indication: BACK PAIN
     Dosage: 30 MILLIGRAM, 3 TIMES A DAY
     Route: 065
     Dates: start: 20090923
  34. OMEPRAZOLE. [Concomitant]
     Active Substance: OMEPRAZOLE
     Indication: PRODUCT USED FOR UNKNOWN INDICATION
     Dosage: 20 MILLIGRAM, ONCE A DAY
     Route: 048
     Dates: start: 20090501
  35. CHLORAMPHENICOL [Concomitant]
     Active Substance: CHLORAMPHENICOL
     Indication: PRODUCT USED FOR UNKNOWN INDICATION
     Dosage: 0.5 PERCENT, FOUR TIMES/DAY
     Route: 047
  36. MICONAZOLE. [Concomitant]
     Active Substance: MICONAZOLE
     Indication: PRODUCT USED FOR UNKNOWN INDICATION
     Dosage: UNK
     Route: 065
  37. DICLOFENAC SODIUM. [Concomitant]
     Active Substance: DICLOFENAC SODIUM
     Dosage: 75 MILLIGRAM, TWO TIMES A DAY
     Route: 065
     Dates: start: 20090501
  38. ARIPIPRAZOLE TABLETS [Suspect]
     Active Substance: ARIPIPRAZOLE
     Indication: PRODUCT USED FOR UNKNOWN INDICATION
     Dosage: 30 MILLIGRAM
     Route: 048
     Dates: start: 20100205
  39. LANSOPRAZOLE. [Suspect]
     Active Substance: LANSOPRAZOLE
     Indication: PRODUCT USED FOR UNKNOWN INDICATION
     Dosage: 30 MILLIGRAM
     Route: 048
     Dates: start: 20100730
  40. DIHYDROCODEINE TARTRATE [Suspect]
     Active Substance: DIHYDROCODEINE BITARTRATE
     Indication: BACK PAIN
     Dosage: UNK UNK, TWO TIMES A DAY(ADDITIONAL INFO: 30MG TABS 1-2TDS, RECEIVED ON 23-SEP-2009)
     Route: 065
  41. PROCHLORPERAZINE. [Concomitant]
     Active Substance: PROCHLORPERAZINE
     Indication: NAUSEA
     Dosage: 5 MILLIGRAM AS NECESSARY
     Route: 048
  42. CLOBAZAM. [Concomitant]
     Active Substance: CLOBAZAM
     Dosage: UNK, TWO TIMES A DAY
     Route: 065
     Dates: start: 20100709
  43. ARIPIPRAZOLE TABLETS [Suspect]
     Active Substance: ARIPIPRAZOLE
     Dosage: 15 MILLIGRAM
     Route: 065
     Dates: start: 20100702
  44. LAMICTAL [Suspect]
     Active Substance: LAMOTRIGINE
     Dosage: 50 MILLIGRAM, TWO TIMES A DAY
     Route: 048
     Dates: start: 20100618
  45. AMOXICILLIN TRIHYDRATE [Concomitant]
     Active Substance: AMOXICILLIN
     Dosage: 500 MILLIGRAM
     Route: 065
     Dates: start: 20100226
  46. AMOXICILLIN TRIHYDRATE [Concomitant]
     Active Substance: AMOXICILLIN
     Dosage: 500 MILLIGRAM
     Route: 065
     Dates: start: 20100326
  47. PROCHLORPERAZINE. [Concomitant]
     Active Substance: PROCHLORPERAZINE
     Dosage: 5 MILLIGRAM
     Route: 065
     Dates: start: 20100122
  48. CHLORAMPHENICOL [Concomitant]
     Active Substance: CHLORAMPHENICOL
     Dosage: 0.5 DOSAGE FORM, FOUR TIMES/DAY (2 DOSAGE FORMS ONCE A DAY)
     Route: 065
     Dates: start: 20090722
  49. CHLORAMPHENICOL [Concomitant]
     Active Substance: CHLORAMPHENICOL
     Dosage: 0.5 PERCENT, FOUR TIMES/DAY
     Route: 047
     Dates: start: 20090923
  50. LACTULOSE. [Concomitant]
     Active Substance: LACTULOSE
     Indication: PRODUCT USED FOR UNKNOWN INDICATION
     Dosage: 1 DOSAGE FORM, ONCE A DAY (1DF=3.35G/5ML  5 TO 10ML/D)
     Route: 065
     Dates: start: 20090506
  51. MICONAZOLE. [Concomitant]
     Active Substance: MICONAZOLE
     Dosage: UNK UNK, ONCE A DAY
     Route: 065
     Dates: start: 20100702
  52. BETAMETHASONE. [Concomitant]
     Active Substance: BETAMETHASONE
     Indication: PRODUCT USED FOR UNKNOWN INDICATION
     Dosage: 0.1 PERCENT, ONCE A DAY
     Route: 045
     Dates: start: 20090722
  53. BETAMETHASONE. [Concomitant]
     Active Substance: BETAMETHASONE
     Dosage: 0.1 PERCENT, TWO TIMES A DAY
     Route: 045
     Dates: start: 20090722
  54. DICLOFENAC SODIUM. [Concomitant]
     Active Substance: DICLOFENAC SODIUM
     Dosage: 150 MILLIGRAM, ONCE A DAY
     Route: 065
     Dates: start: 20090501
  55. LACTULOSE. [Concomitant]
     Active Substance: LACTULOSE
     Dosage: 1 DOSAGE FORM, ONCE A DAY (1DF=3.35G/5ML 5 TO 10ML/D )
     Route: 065
     Dates: start: 20090506

REACTIONS (6)
  - Premature baby [Unknown]
  - Live birth [Unknown]
  - Premature labour [Unknown]
  - Cholestasis of pregnancy [Recovered/Resolved]
  - Seizure [Not Recovered/Not Resolved]
  - Maternal exposure during pregnancy [Recovered/Resolved]

NARRATIVE: CASE EVENT DATE: 20090902
